FAERS Safety Report 24578989 (Version 1)
Quarter: 2024Q4

REPORT INFORMATION
  Report Type: Spontaneous
  Country: US (occurrence: US)
  Receive Date: 20241105
  Receipt Date: 20241105
  Transmission Date: 20250115
  Serious: Yes (Other)
  Sender: ABBVIE
  Company Number: US-ABBVIE-5988273

PATIENT
  Age: 74 Year
  Sex: Female

DRUGS (4)
  1. ELAHERE [Suspect]
     Active Substance: MIRVETUXIMAB SORAVTANSINE-GYNX
     Indication: Product used for unknown indication
     Dosage: 243.6MG PER CYCLE (CONSISTENT FOR 6 DOSES)    DISCONTINUED JUN 2024
     Route: 042
     Dates: start: 20240614
  2. ELAHERE [Suspect]
     Active Substance: MIRVETUXIMAB SORAVTANSINE-GYNX
     Indication: Product used for unknown indication
     Dosage: 243.6MG PER CYCLE (CONSISTENT FOR 6 DOSES)
     Route: 042
     Dates: start: 202407, end: 202407
  3. ELAHERE [Suspect]
     Active Substance: MIRVETUXIMAB SORAVTANSINE-GYNX
     Indication: Product used for unknown indication
     Dosage: 243.6MG PER CYCLE (CONSISTENT FOR 6 DOSES)
     Route: 042
     Dates: start: 202408, end: 202408
  4. ELAHERE [Suspect]
     Active Substance: MIRVETUXIMAB SORAVTANSINE-GYNX
     Indication: Product used for unknown indication
     Dosage: 243.6MG PER CYCLE (CONSISTENT FOR 6 DOSES)
     Route: 042
     Dates: start: 202409, end: 20240927

REACTIONS (2)
  - Disease progression [Unknown]
  - Drug ineffective [Unknown]

NARRATIVE: CASE EVENT DATE: 20240101
